FAERS Safety Report 23797845 (Version 1)
Quarter: 2024Q2

REPORT INFORMATION
  Report Type: Spontaneous
  Country: US (occurrence: US)
  Receive Date: 20240430
  Receipt Date: 20240430
  Transmission Date: 20240715
  Serious: No
  Sender: FDA-Public Use
  Company Number: US-APOTEX-2023AP017623

PATIENT
  Age: 71 Year
  Sex: Male
  Weight: 81.3 kg

DRUGS (5)
  1. CITALOPRAM [Interacting]
     Active Substance: CITALOPRAM\CITALOPRAM HYDROBROMIDE
     Indication: Product used for unknown indication
     Dosage: UNK
     Route: 065
  2. TRAZODONE [Interacting]
     Active Substance: TRAZODONE HYDROCHLORIDE
     Indication: Product used for unknown indication
     Dosage: UNK
     Route: 065
  3. CARBOPLATIN;PEMBROLIZUMAB;PEMETREXED [Concomitant]
     Indication: Lung neoplasm malignant
     Dosage: UNK
     Route: 065
  4. CARBOPLATIN;PEMBROLIZUMAB;PEMETREXED [Concomitant]
     Indication: Chemotherapy
  5. RIVAROXABAN [Concomitant]
     Active Substance: RIVAROXABAN
     Indication: Atrial fibrillation
     Dosage: UNK
     Route: 048

REACTIONS (1)
  - Drug interaction [Unknown]
